FAERS Safety Report 7483449-2 (Version None)
Quarter: 2011Q2

REPORT INFORMATION
  Report Type: 
  Country: None (occurrence: None)
  Receive Date: 20110509
  Receipt Date: 20110422
  Transmission Date: 20111010
  Serious: Yes (Disabling, Other)
  Sender: FDA-Public Use
  Company Number: 2011P1005459

PATIENT
  Age: 51 Year
  Sex: Male
  Weight: 102.0593 kg

DRUGS (9)
  1. PRAVASTATIN [Concomitant]
  2. ZETIA [Concomitant]
  3. TRATRATE [Concomitant]
  4. FENOFIBRATE [Concomitant]
  5. FENTANYL [Suspect]
     Indication: INTERVERTEBRAL DISC PROTRUSION
     Dosage: TDER
     Route: 062
     Dates: start: 20040301, end: 20040801
  6. PLAVIX [Concomitant]
  7. FENTANYL [Suspect]
     Indication: INTERVERTEBRAL DISC PROTRUSION
     Dosage: 1 PATCH;Q3D;TDER
     Route: 062
     Dates: start: 20050101, end: 20110314
  8. FENTANYL [Suspect]
     Indication: INTERVERTEBRAL DISC PROTRUSION
     Dosage: TDER
     Route: 062
     Dates: start: 20040801, end: 20050101
  9. METOPROLOL TARTRATE [Concomitant]

REACTIONS (14)
  - CHEST PAIN [None]
  - INCORRECT DOSE ADMINISTERED BY DEVICE [None]
  - AMNESIA [None]
  - DEMENTIA [None]
  - RETCHING [None]
  - FATIGUE [None]
  - DEHYDRATION [None]
  - INCOHERENT [None]
  - DIZZINESS [None]
  - CONDITION AGGRAVATED [None]
  - HYPERHIDROSIS [None]
  - HEARING IMPAIRED [None]
  - GAIT DISTURBANCE [None]
  - DYSPNOEA [None]
